FAERS Safety Report 5159074-5 (Version None)
Quarter: 2006Q4

REPORT INFORMATION
  Report Type: 
  Country: None (occurrence: None)
  Receive Date: 20061128
  Receipt Date: 20060607
  Transmission Date: 20070319
  Serious: Yes (Other)
  Sender: FDA-Public Use
  Company Number: US-BOEHRINGER INGELHEIM GMBH, GERMANY-2006-DE-02950GD

PATIENT
  Age: 54 Year
  Sex: Male

DRUGS (3)
  1. CLONIDINE [Suspect]
     Indication: HYPERTENSION
     Route: 062
  2. DILTIAZEM HCL [Suspect]
     Indication: HYPERTENSION
  3. LISINOPRIL [Suspect]
     Indication: HYPERTENSION

REACTIONS (1)
  - DRUG INEFFECTIVE [None]
